FAERS Safety Report 8032169-4 (Version None)
Quarter: 2012Q1

REPORT INFORMATION
  Report Type: 
  Country: None (occurrence: None)
  Receive Date: 20120109
  Receipt Date: 20120104
  Transmission Date: 20120608
  Serious: Yes (Hospitalization)
  Sender: FDA-Public Use
  Company Number: US-AMGEN-USASP2012000457

PATIENT
  Age: 62 Year
  Sex: Male

DRUGS (1)
  1. ENBREL [Suspect]
     Indication: RHEUMATOID ARTHRITIS
     Dosage: 25 MG, 2 TIMES/WK
     Dates: start: 20080701, end: 20110220

REACTIONS (8)
  - RED BLOOD CELL SEDIMENTATION RATE INCREASED [None]
  - SKELETAL INJURY [None]
  - SINUSITIS [None]
  - FALL [None]
  - RIB FRACTURE [None]
  - PNEUMONIA [None]
  - RHEUMATOID FACTOR INCREASED [None]
  - DRUG INEFFECTIVE [None]
